FAERS Safety Report 10098476 (Version 1)
Quarter: 2014Q2

REPORT INFORMATION
  Report Type: Spontaneous
  Country: FR (occurrence: None)
  Receive Date: 20140421
  Receipt Date: 20140421
  Transmission Date: 20141212
  Serious: Yes (Other)
  Sender: FDA-Public Use
  Company Number: 2292963

PATIENT
  Age: 72 Year
  Sex: Male

DRUGS (13)
  1. CARBOPLATIN [Suspect]
     Indication: PRODUCT USED FOR UNKNOWN INDICATION
     Dosage: INTRAVENOUS (NOT OTHERWISE SPECIFIED)
     Route: 042
     Dates: start: 20120223, end: 20120426
  2. ALIMTA [Suspect]
     Indication: PRODUCT USED FOR UNKNOWN INDICATION
     Dosage: INTRAVENOUS (NOT OTHERWISE SPECIFIED)
     Route: 042
     Dates: start: 20120223, end: 20120426
  3. INEXIUM [Concomitant]
  4. PREVISCAN [Concomitant]
  5. SEROPLEX [Concomitant]
  6. ZOLPIDEM [Concomitant]
  7. PRAVASTATIN [Concomitant]
  8. XATRAL [Concomitant]
  9. XANAX [Concomitant]
  10. VIRLIX [Concomitant]
  11. EFFERALGAN [Concomitant]
  12. RAMIPRIL [Concomitant]
  13. KAYEXALATE [Concomitant]

REACTIONS (2)
  - Renal failure acute [None]
  - Renal tubular disorder [None]
